FAERS Safety Report 4297027-X (Version None)
Quarter: 2004Q1

REPORT INFORMATION
  Report Type: 
  Country: None (occurrence: None)
  Receive Date: 20040213
  Receipt Date: 20040206
  Transmission Date: 20041129
  Serious: Yes (Hospitalization)
  Sender: FDA-Public Use
  Company Number: 2003CG01715

PATIENT
  Age: 49 Year
  Sex: Female
  Weight: 55 kg

DRUGS (8)
  1. IRESSA [Suspect]
     Indication: LUNG NEOPLASM MALIGNANT
     Dosage: 250 MG QD PO
     Route: 048
     Dates: start: 20031017, end: 20031128
  2. IRESSA [Suspect]
     Indication: LUNG NEOPLASM MALIGNANT
     Dosage: 250 MG QD PO
     Route: 048
     Dates: start: 20031201
  3. DOCETAXEL [Suspect]
     Indication: LUNG NEOPLASM MALIGNANT
     Dates: start: 20031017
  4. ANAFRANIL [Concomitant]
  5. ATARAX [Concomitant]
  6. VENTOLIN [Concomitant]
  7. GLUCOPHAGE [Concomitant]
  8. MOPRAL [Concomitant]

REACTIONS (3)
  - BACTERIAL INFECTION [None]
  - CHRONIC OBSTRUCTIVE AIRWAYS DISEASE EXACERBATED [None]
  - PYREXIA [None]
